FAERS Safety Report 9112696 (Version 1)
Quarter: 2013Q1

REPORT INFORMATION
  Report Type: Spontaneous
  Country: US (occurrence: US)
  Receive Date: 20130211
  Receipt Date: 20130211
  Transmission Date: 20140127
  Serious: No
  Sender: FDA-Public Use
  Company Number: US-ASTRAZENECA-2013SE03688

PATIENT
  Age: 24 Year
  Sex: Female

DRUGS (2)
  1. NEXIUM [Suspect]
     Indication: GASTROOESOPHAGEAL REFLUX DISEASE
     Route: 048
     Dates: start: 201209
  2. PRILOSEC [Suspect]
     Indication: GASTRITIS
     Route: 048

REACTIONS (5)
  - Pharyngitis [Not Recovered/Not Resolved]
  - Hypopnoea [Unknown]
  - Abdominal pain upper [Not Recovered/Not Resolved]
  - Intentional drug misuse [Not Recovered/Not Resolved]
  - Drug ineffective [Not Recovered/Not Resolved]
